FAERS Safety Report 8987935 (Version 3)
Quarter: 2013Q1

REPORT INFORMATION
  Report Type: Spontaneous
  Country: CA (occurrence: CA)
  Receive Date: 20121227
  Receipt Date: 20130114
  Transmission Date: 20140127
  Serious: Yes (Hospitalization, Other)
  Sender: FDA-Public Use
  Company Number: CA-PFIZER INC-2012328067

PATIENT
  Age: 57 Year
  Sex: Female
  Weight: 90.7 kg

DRUGS (11)
  1. LYRICA [Suspect]
     Indication: PAIN
     Dosage: 150 MG, 2X/DAY (MORNING AND EVENING)
     Dates: start: 201206
  2. LYRICA [Suspect]
     Indication: SCIATICA
     Dosage: 1 CAPS, 2X/DAY
  3. LYRICA [Suspect]
     Dosage: 2 CAPS, 2X/DAY
  4. LYRICA [Suspect]
     Dosage: 2 CAPS, 3X/DAY
  5. LYRICA [Suspect]
     Dosage: 150 MG TWICE IN THE MORNING AND 150 MG TWICE AT NIGHT
     Dates: start: 201208
  6. LYRICA [Suspect]
     Dosage: 2 CAPS, 3X DAY
  7. LYRICA [Suspect]
     Dosage: 150 MG 3 TIMES IN THE MORNING AND 150 MG 3 TIMES AT NIGHT
  8. LYRICA [Suspect]
     Dosage: 150 MG TWICE IN MORNING AND 150MG TWICE AT NIGHT
  9. LYRICA [Suspect]
     Dosage: 225 MG, 2X/DAY
     Dates: start: 201212
  10. LYRICA [Suspect]
     Dosage: 150 MG, 2X/DAY
     Dates: start: 201212
  11. LYRICA [Suspect]
     Dosage: 150MG TWICE IN THE MORNING AND 150MG TWICE AT NIGHT
     Dates: start: 20121228

REACTIONS (19)
  - Pneumonia [Unknown]
  - Staphylococcal infection [Unknown]
  - Sciatica [Unknown]
  - Off label use [Unknown]
  - Walking disability [Not Recovered/Not Resolved]
  - Activities of daily living impaired [Unknown]
  - Gait disturbance [Unknown]
  - Joint swelling [Not Recovered/Not Resolved]
  - Arthralgia [Not Recovered/Not Resolved]
  - Aphasia [Recovered/Resolved]
  - Movement disorder [Unknown]
  - Drug ineffective [Not Recovered/Not Resolved]
  - Erythema [Not Recovered/Not Resolved]
  - Insomnia [Unknown]
  - Somnolence [Unknown]
  - Intentional drug misuse [Unknown]
  - Crying [Unknown]
  - Feeling abnormal [Unknown]
  - Hypoaesthesia [Not Recovered/Not Resolved]
